FAERS Safety Report 24680040 (Version 2)
Quarter: 2024Q4

REPORT INFORMATION
  Report Type: Spontaneous
  Country: CO (occurrence: CO)
  Receive Date: 20241129
  Receipt Date: 20241227
  Transmission Date: 20250115
  Serious: Yes (Death, Other)
  Sender: SANDOZ
  Company Number: CO-002147023-NVSC2024CO207677

PATIENT
  Age: 77 Year
  Sex: Female
  Weight: 45 kg

DRUGS (1)
  1. EXELON [Suspect]
     Active Substance: RIVASTIGMINE TARTRATE
     Indication: Dementia Alzheimer^s type
     Dosage: 9 MG (1 PATCH), QD
     Route: 062
     Dates: start: 20240911

REACTIONS (8)
  - Pneumonia [Fatal]
  - Hypotension [Fatal]
  - Oxygen saturation decreased [Fatal]
  - Blood glucose decreased [Fatal]
  - Dyspnoea [Fatal]
  - Breast cancer [Not Recovered/Not Resolved]
  - Breast mass [Not Recovered/Not Resolved]
  - Dyspnoea [Recovered/Resolved]

NARRATIVE: CASE EVENT DATE: 20241013
